FAERS Safety Report 4309866-7 (Version None)
Quarter: 2004Q1

REPORT INFORMATION
  Report Type: 
  Country: None (occurrence: None)
  Receive Date: 20040303
  Receipt Date: 20040108
  Transmission Date: 20041129
  Serious: No
  Sender: FDA-Public Use
  Company Number: US-BRISTOL-MYERS SQUIBB COMPANY-12473427

PATIENT
  Age: 11 Year
  Sex: Male
  Weight: 36 kg

DRUGS (6)
  1. ABILIFY [Suspect]
     Indication: BIPOLAR DISORDER
     Dosage: 07-JAN-04 DOSE REDUCED TO ONE PIECE OF A 10 MG SAMPLE TABLET WHICH WAS CUT INTO 3 PIECES
     Route: 048
     Dates: start: 20040101
  2. ABILIFY [Suspect]
     Indication: AUTISM
     Dosage: 07-JAN-04 DOSE REDUCED TO ONE PIECE OF A 10 MG SAMPLE TABLET WHICH WAS CUT INTO 3 PIECES
     Route: 048
     Dates: start: 20040101
  3. ABILIFY [Suspect]
     Indication: MOOD SWINGS
     Dosage: 07-JAN-04 DOSE REDUCED TO ONE PIECE OF A 10 MG SAMPLE TABLET WHICH WAS CUT INTO 3 PIECES
     Route: 048
     Dates: start: 20040101
  4. ABILIFY [Suspect]
     Indication: AGGRESSION
     Dosage: 07-JAN-04 DOSE REDUCED TO ONE PIECE OF A 10 MG SAMPLE TABLET WHICH WAS CUT INTO 3 PIECES
     Route: 048
     Dates: start: 20040101
  5. ABILIFY [Suspect]
     Indication: SELF INJURIOUS BEHAVIOUR
     Dosage: 07-JAN-04 DOSE REDUCED TO ONE PIECE OF A 10 MG SAMPLE TABLET WHICH WAS CUT INTO 3 PIECES
     Route: 048
     Dates: start: 20040101
  6. DEPAKOTE [Concomitant]

REACTIONS (1)
  - FATIGUE [None]
